FAERS Safety Report 5764152-3 (Version None)
Quarter: 2008Q2

REPORT INFORMATION
  Report Type: 
  Country: None (occurrence: None)
  Receive Date: 20080609
  Receipt Date: 20080328
  Transmission Date: 20081010
  Serious: No
  Sender: FDA-Public Use
  Company Number: 002#2#2008-00173

PATIENT
  Age: 49 Year
  Sex: Female
  Weight: 47.6277 kg

DRUGS (7)
  1. NEUPRO [Suspect]
     Indication: PARKINSON'S DISEASE
     Dosage: 6 MG/24H, 1 IN 1 D, TRANSDERAL
     Route: 062
     Dates: start: 20071201, end: 20080301
  2. NAPROXEN SODIUM [Concomitant]
  3. MULTI-VITAMIN [Concomitant]
  4. GINKO BILOBA [Concomitant]
  5. VITAMIN E [Concomitant]
  6. COENZYME Q10 [Concomitant]
  7. WELLBUTRIN [Concomitant]

REACTIONS (2)
  - DIPLOPIA [None]
  - VISION BLURRED [None]
